FAERS Safety Report 13280529 (Version 1)
Quarter: 2017Q1

REPORT INFORMATION
  Report Type: Spontaneous
  Country: US (occurrence: US)
  Receive Date: 20170228
  Receipt Date: 20170228
  Transmission Date: 20170428
  Serious: Yes (Other)
  Sender: FDA-Public Use
  Company Number: None

PATIENT
  Age: 34 Year
  Sex: Female
  Weight: 55.7 kg

DRUGS (1)
  1. INJECTAFER [Suspect]
     Active Substance: FERRIC CARBOXYMALTOSE
     Route: 042
     Dates: start: 20160725, end: 20160725

REACTIONS (4)
  - Vision blurred [None]
  - Infusion related reaction [None]
  - Ear disorder [None]
  - Speech disorder [None]

NARRATIVE: CASE EVENT DATE: 20160725
